FAERS Safety Report 20342886 (Version 1)
Quarter: 2022Q1

REPORT INFORMATION
  Report Type: Spontaneous
  Country: US (occurrence: US)
  Receive Date: 20220117
  Receipt Date: 20220117
  Transmission Date: 20220423
  Serious: No
  Sender: FDA-Public Use
  Company Number: US-TAKEDA-2022TUS001990

PATIENT
  Sex: Male

DRUGS (8)
  1. GATTEX [Suspect]
     Active Substance: TEDUGLUTIDE\WATER
     Indication: Short-bowel syndrome
     Dosage: UNK
     Route: 065
     Dates: start: 202111
  2. GATTEX [Suspect]
     Active Substance: TEDUGLUTIDE\WATER
     Indication: Short-bowel syndrome
     Dosage: UNK
     Route: 065
     Dates: start: 202111
  3. GATTEX [Suspect]
     Active Substance: TEDUGLUTIDE\WATER
     Indication: Short-bowel syndrome
     Dosage: UNK
     Route: 065
     Dates: start: 202111
  4. GATTEX [Suspect]
     Active Substance: TEDUGLUTIDE\WATER
     Indication: Short-bowel syndrome
     Dosage: UNK
     Route: 065
     Dates: start: 202111
  5. GATTEX [Suspect]
     Active Substance: TEDUGLUTIDE\WATER
     Indication: Colon cancer
  6. GATTEX [Suspect]
     Active Substance: TEDUGLUTIDE\WATER
     Indication: Colon cancer
  7. GATTEX [Suspect]
     Active Substance: TEDUGLUTIDE\WATER
     Indication: Colon cancer
  8. GATTEX [Suspect]
     Active Substance: TEDUGLUTIDE\WATER
     Indication: Colon cancer

REACTIONS (2)
  - Off label use [Unknown]
  - No adverse event [Unknown]
